FAERS Safety Report 8764698 (Version 2)
Quarter: 2012Q4

REPORT INFORMATION
  Report Type: 
  Country: GB (occurrence: GB)
  Receive Date: 20120831
  Receipt Date: 20120913
  Transmission Date: 20130627
  Serious: Yes (Hospitalization)
  Sender: FDA-Public Use
  Company Number: GB-PFIZER INC-2012215035

PATIENT
  Age: 52 Year
  Sex: Female

DRUGS (5)
  1. IBUPROFEN [Suspect]
     Indication: OSTEOARTHRITIS
     Dosage: 200-400 mg three times a day
     Route: 048
     Dates: end: 20120815
  2. IBUPROFEN [Suspect]
     Indication: BACK PAIN
  3. BETAMETHASONE SODIUM PHOSPHATE [Concomitant]
     Indication: MOUTH ULCERATION
     Dosage: 0.1 % strength 1 dosage form as
     Route: 048
  4. LISINOPRIL [Concomitant]
     Dosage: UNK
  5. PARACETAMOL [Concomitant]
     Dosage: UNK

REACTIONS (2)
  - Duodenal ulcer perforation [Not Recovered/Not Resolved]
  - Abdominal pain [Unknown]
